FAERS Safety Report 5626734-9 (Version None)
Quarter: 2008Q1

REPORT INFORMATION
  Report Type: 
  Country: None (occurrence: None)
  Receive Date: 20080214
  Receipt Date: 20080213
  Transmission Date: 20080703
  Serious: Yes (Death)
  Sender: FDA-Public Use
  Company Number: DE-GENENTECH-254381

PATIENT
  Age: 27 Week
  Sex: Female
  Weight: 1.015 kg

DRUGS (1)
  1. HERCEPTIN [Suspect]
     Indication: BREAST CANCER METASTATIC
     Dosage: UNK, UNK
     Route: 064

REACTIONS (3)
  - CAPILLARY LEAK SYNDROME [None]
  - NECROTISING COLITIS [None]
  - RESPIRATORY FAILURE [None]
